FAERS Safety Report 18832968 (Version 1)
Quarter: 2021Q1

REPORT INFORMATION
  Report Type: Spontaneous
  Country: US (occurrence: US)
  Receive Date: 20210201
  Receipt Date: 20210201
  Transmission Date: 20210419
  Serious: No
  Sender: FDA-Public Use
  Company Number: US-SA-2021SA028608

PATIENT
  Age: 50 Year
  Sex: Female

DRUGS (1)
  1. DUPIXENT [Suspect]
     Active Substance: DUPILUMAB
     Indication: ASTHMA
     Route: 058
     Dates: start: 20200604

REACTIONS (4)
  - Pruritus [Unknown]
  - Dry skin [Unknown]
  - COVID-19 [Recovered/Resolved]
  - Skin fissures [Unknown]

NARRATIVE: CASE EVENT DATE: 202006
